FAERS Safety Report 7931589-3 (Version None)
Quarter: 2011Q4

REPORT INFORMATION
  Report Type: 
  Country: None (occurrence: None)
  Receive Date: 20111121
  Receipt Date: 20111109
  Transmission Date: 20120403
  Serious: Yes (Hospitalization)
  Sender: FDA-Public Use
  Company Number: JP-ASTRAZENECA-2011SE57183

PATIENT
  Age: 34 Year
  Sex: Male

DRUGS (6)
  1. BLONANSERIN [Concomitant]
  2. LENDORMIN [Concomitant]
  3. U PAN [Concomitant]
  4. SEROQUEL [Suspect]
     Indication: SCHIZOPHRENIA
     Dosage: 4 X 75 MG DAILY
     Route: 048
  5. FLUNITRAZEPAM [Concomitant]
  6. LEVOTOMIN [Concomitant]

REACTIONS (2)
  - FALL [None]
  - OVERDOSE [None]
